FAERS Safety Report 10683385 (Version 1)
Quarter: 2014Q4

REPORT INFORMATION
  Report Type: Spontaneous
  Country: US (occurrence: US)
  Receive Date: 20141230
  Receipt Date: 20141230
  Transmission Date: 20150529
  Serious: No
  Sender: FDA-Public Use
  Company Number: US-PFIZER INC-2014356562

PATIENT
  Age: 63 Year
  Sex: Male
  Weight: 74.83 kg

DRUGS (3)
  1. IRON [Concomitant]
     Active Substance: IRON
     Dosage: 325 MG, 1X/DAY
  2. GABAPENTIN. [Suspect]
     Active Substance: GABAPENTIN
     Indication: RESTLESS LEGS SYNDROME
     Dosage: 100 MG (2 PILLS), 1X/DAY (EVERY NIGHT)
     Dates: start: 201412
  3. LISINOPRIL. [Concomitant]
     Active Substance: LISINOPRIL
     Indication: HYPERTENSION
     Dosage: 12.5 MG, 1X/DAY

REACTIONS (2)
  - Drug ineffective [Unknown]
  - Somnolence [Unknown]
